FAERS Safety Report 22276184 (Version 1)
Quarter: 2023Q2

REPORT INFORMATION
  Report Type: Spontaneous
  Country: US (occurrence: US)
  Receive Date: 20230502
  Receipt Date: 20230502
  Transmission Date: 20230721
  Serious: Yes (Other)
  Sender: FDA-Public Use
  Company Number: US-CELLTRION INC.-2023US008966

PATIENT

DRUGS (2)
  1. TRUXIMA [Suspect]
     Active Substance: RITUXIMAB-ABBS
     Indication: Nephrotic syndrome
     Dosage: 1000MG, 2 DOSES 14 DAYS APART
     Dates: start: 20230217
  2. TRUXIMA [Suspect]
     Active Substance: RITUXIMAB-ABBS
     Indication: Glomerulonephritis minimal lesion

REACTIONS (3)
  - Nephrotic syndrome [Unknown]
  - Glomerulonephritis minimal lesion [Unknown]
  - Off label use [Unknown]
